FAERS Safety Report 16979076 (Version 1)
Quarter: 2019Q4

REPORT INFORMATION
  Report Type: Spontaneous
  Country: US (occurrence: US)
  Receive Date: 20191031
  Receipt Date: 20191031
  Transmission Date: 20200122
  Serious: No
  Sender: FDA-Public Use
  Company Number: US-BRISTOL-MYERS SQUIBB COMPANY-BMS-2019-104178

PATIENT

DRUGS (1)
  1. ELIQUIS [Suspect]
     Active Substance: APIXABAN
     Indication: THROMBOSIS
     Dosage: 5 MILLIGRAM, BID
     Route: 065
     Dates: start: 20180628

REACTIONS (6)
  - Intentional product use issue [Unknown]
  - Tinnitus [Unknown]
  - Feeling hot [Unknown]
  - Mouth haemorrhage [Unknown]
  - Feeling abnormal [Unknown]
  - Head discomfort [Unknown]
